FAERS Safety Report 21154660 (Version 1)
Quarter: 2022Q3

REPORT INFORMATION
  Report Type: Spontaneous
  Country: US (occurrence: US)
  Receive Date: 20220801
  Receipt Date: 20220801
  Transmission Date: 20221027
  Serious: Yes (Hospitalization, Other)
  Sender: FDA-Public Use
  Company Number: US-SA-SAC20220728001794

PATIENT
  Age: 72 Year
  Sex: Female

DRUGS (8)
  1. LANTUS [Suspect]
     Active Substance: INSULIN GLARGINE
     Dosage: 14 UNITS ONCE IN THE MORNING
     Route: 065
  2. IBRANCE [Concomitant]
     Active Substance: PALBOCICLIB
     Indication: Bone cancer
     Dosage: ONE TABLET PER DAY FOR 3 WEEKS AND THEN OFF ONE WEEK;
  3. METOPROLOL SUCCINATE [Concomitant]
     Active Substance: METOPROLOL SUCCINATE
     Dosage: 50 MG
  4. ELIQUIS [Concomitant]
     Active Substance: APIXABAN
     Dosage: 5MG TWO TIMES A DAY
  5. ATORVASTATIN [Concomitant]
     Active Substance: ATORVASTATIN
     Dosage: 80 MG
  6. HUMALOG [Concomitant]
     Active Substance: INSULIN LISPRO
     Dosage: 9 UNITS IN MORNING AND 10 UNITS IN EVENING
  7. LETROZOLE [Concomitant]
     Active Substance: LETROZOLE
     Dosage: 2.5MG ONCE A DAY
  8. LISINOPRIL [Concomitant]
     Active Substance: LISINOPRIL
     Dosage: 40MG ONCE A DAY

REACTIONS (1)
  - Atrial fibrillation [Unknown]

NARRATIVE: CASE EVENT DATE: 20220711
